FAERS Safety Report 7377691-9 (Version None)
Quarter: 2011Q1

REPORT INFORMATION
  Report Type: 
  Country: None (occurrence: None)
  Receive Date: 20110328
  Receipt Date: 20110118
  Transmission Date: 20110831
  Serious: Yes (Hospitalization, Other)
  Sender: FDA-Public Use
  Company Number: US-AMGEN-USASP2011000425

PATIENT
  Sex: Female
  Weight: 115.65 kg

DRUGS (3)
  1. NEULASTA [Suspect]
     Indication: NEUTROPENIA
     Dosage: UNK
     Dates: start: 20101217
  2. TAXOTERE [Concomitant]
     Dosage: UNK
     Dates: start: 20101220
  3. CYCLOPHOSPHAMIDE [Concomitant]
     Dosage: UNK
     Dates: start: 20101230

REACTIONS (6)
  - SEPSIS [None]
  - SHOCK [None]
  - BLOOD CREATININE INCREASED [None]
  - RENAL FAILURE [None]
  - PNEUMONIA [None]
  - NEUTROPHIL COUNT INCREASED [None]
